FAERS Safety Report 16933808 (Version 1)
Quarter: 2019Q4

REPORT INFORMATION
  Report Type: Other
  Country: ES (occurrence: ES)
  Receive Date: 20191018
  Receipt Date: 20191018
  Transmission Date: 20200122
  Serious: Yes (Hospitalization, Other)
  Sender: FDA-Public Use
  Company Number: ES-GRANULES INDIA LIMITED-2075811

PATIENT
  Age: 74 Year
  Sex: Female

DRUGS (6)
  1. SALMETEROL [Concomitant]
     Active Substance: SALMETEROL
     Route: 065
  2. GABAPENTIN CAPSULES USP, 100 MG, 300 MG AND 400 MG [Suspect]
     Active Substance: GABAPENTIN
     Indication: PRODUCT USED FOR UNKNOWN INDICATION
     Route: 065
  3. IPRATROPIUM BROMIDE. [Concomitant]
     Active Substance: IPRATROPIUM BROMIDE
     Route: 065
  4. CORTICOSTEROIDS [Concomitant]
     Active Substance: CORTICOSTEROID NOS
     Route: 065
  5. LEVOFLOXACIN. [Concomitant]
     Active Substance: LEVOFLOXACIN
     Route: 065
  6. FLUTICASONE. [Concomitant]
     Active Substance: FLUTICASONE
     Route: 065

REACTIONS (7)
  - Respiratory failure [Recovering/Resolving]
  - Poor quality sleep [Recovering/Resolving]
  - Hypersomnia [Recovering/Resolving]
  - Abdominal pain [Recovering/Resolving]
  - Depressed level of consciousness [Recovering/Resolving]
  - Hypoventilation [Recovering/Resolving]
  - Hyperkalaemia [Recovering/Resolving]
